FAERS Safety Report 10062539 (Version 1)
Quarter: 2014Q1

REPORT INFORMATION
  Report Type: Spontaneous
  Country: US (occurrence: None)
  Receive Date: 20140313
  Receipt Date: 20140313
  Transmission Date: 20141002
  Serious: No
  Sender: FDA-Public Use
  Company Number: 1000051728

PATIENT
  Age: 55 Year
  Sex: Female

DRUGS (6)
  1. DALIRESP (ROFLUMILAST) (500 MICROGRAM, TABLETS) [Suspect]
     Indication: CHRONIC OBSTRUCTIVE PULMONARY DISEASE
     Dosage: 500 MCG  (500 MCG, 1 IN 1 D)  11/11/2013 - ONGOING  THERAPY
     Dates: start: 20131111
  2. TRAZODONE (TRAZODONE) (TRAZODONE) [Concomitant]
  3. WELLBUTRIN (BUPROPION HYDROCHLORIDE) (BUPROPION HYDROCHLORIDE) [Concomitant]
  4. PERPHENAZINE (PERPHENAZINE) (PERPHENAZINE) [Concomitant]
  5. SYNTHROID (LEVOTHYROXINE SODIUM) (LEVOTHYROXINE SODIUM) [Concomitant]
  6. KLONOPIN (CLONAZEPAM) (CLONAZEPAM) [Concomitant]

REACTIONS (5)
  - Visual impairment [None]
  - Asthenia [None]
  - Tremor [None]
  - Nausea [None]
  - Chest discomfort [None]
